FAERS Safety Report 4588101-9 (Version None)
Quarter: 2005Q1

REPORT INFORMATION
  Report Type: 
  Country: None (occurrence: None)
  Receive Date: 20050216
  Receipt Date: 20050127
  Transmission Date: 20050727
  Serious: Yes (Death)
  Sender: FDA-Public Use
  Company Number: JP_050105740

PATIENT

DRUGS (8)
  1. ONCOVIN [Suspect]
     Indication: ACUTE LYMPHOCYTIC LEUKAEMIA
     Dosage: 0.05 MG/KG OTHER
  2. DEXAMETHASONE [Concomitant]
  3. CYCLOPHOSPHAMIDE [Concomitant]
  4. DOXORUBICIN HCL [Concomitant]
  5. ETOPOSIDE [Concomitant]
  6. CYTARABINE [Concomitant]
  7. METHOTREXATE [Concomitant]
  8. HYDROCORTISONE [Concomitant]

REACTIONS (1)
  - INTERSTITIAL LUNG DISEASE [None]
